FAERS Safety Report 17440695 (Version 1)
Quarter: 2020Q1

REPORT INFORMATION
  Report Type: Spontaneous
  Country: US (occurrence: US)
  Receive Date: 20200220
  Receipt Date: 20200220
  Transmission Date: 20200409
  Serious: Yes (Hospitalization)
  Sender: FDA-Public Use
  Company Number: None

PATIENT
  Age: 7 Year
  Sex: Female
  Weight: 29.25 kg

DRUGS (3)
  1. CEFDINIR 250MG/5ML [Suspect]
     Active Substance: CEFDINIR
     Indication: URINARY TRACT INFECTION
     Route: 048
     Dates: start: 20200124, end: 20200202
  2. CHILDRENS BENADRYL ALLERGY [Concomitant]
     Active Substance: DIPHENHYDRAMINE HYDROCHLORIDE
  3. CHILDRENS MOTRIN [Concomitant]
     Active Substance: IBUPROFEN

REACTIONS (6)
  - Vomiting [None]
  - Pruritus [None]
  - Oedema peripheral [None]
  - Pyrexia [None]
  - Urticaria [None]
  - Arthralgia [None]

NARRATIVE: CASE EVENT DATE: 20200203
